FAERS Safety Report 8576266-3 (Version None)
Quarter: 2012Q3

REPORT INFORMATION
  Report Type: 
  Country: None (occurrence: None)
  Receive Date: 20120807
  Receipt Date: 20120801
  Transmission Date: 20120928
  Serious: Yes (Other)
  Sender: FDA-Public Use
  Company Number: PHHY2012FR066313

PATIENT
  Age: 32 Year
  Sex: Female

DRUGS (4)
  1. CLOZAPINE [Suspect]
     Dosage: 400 MG, DAILY
  2. CLOZAPINE [Suspect]
     Dosage: 125 MG/DAY
  3. CLOZAPINE [Suspect]
     Indication: SCHIZOPHRENIA, PARANOID TYPE
  4. CLOZAPINE [Suspect]
     Dosage: 100 MG, DAILY

REACTIONS (8)
  - DYSPHEMIA [None]
  - DYSKINESIA [None]
  - SPASMODIC DYSPHONIA [None]
  - DYSTONIA [None]
  - ELECTROENCEPHALOGRAM ABNORMAL [None]
  - EPILEPSY [None]
  - ACTIVITIES OF DAILY LIVING IMPAIRED [None]
  - PHARYNGEAL DISORDER [None]
